FAERS Safety Report 8620481-7 (Version None)
Quarter: 2012Q3

REPORT INFORMATION
  Report Type: 
  Country: None (occurrence: None)
  Receive Date: 20120824
  Receipt Date: 20120409
  Transmission Date: 20120928
  Serious: Yes (Other)
  Sender: FDA-Public Use
  Company Number: US-009507513-1208USA007751

PATIENT

DRUGS (10)
  1. ACETAMINOPHEN [Concomitant]
  2. PROCRIT [Concomitant]
  3. PHENOBARBITAL TAB [Concomitant]
  4. REBETOL [Suspect]
     Indication: HEPATITIS C
     Dosage: 1200 MG, UNK
  5. NEUPOGEN [Concomitant]
  6. VICTRELIS [Suspect]
     Indication: HEPATITIS C
     Dosage: 4 UNK, UNK
  7. HYOSCYAMINE HYDROBROMIDE [Concomitant]
  8. PEGINTERFERON ALFA-2A [Suspect]
     Indication: HEPATITIS C
     Dosage: 180 MICROGRAM, QW
  9. SCOPOLAMINE HYDROBROMIDE [Concomitant]
  10. ATROPINE SULFATE [Concomitant]

REACTIONS (3)
  - WHITE BLOOD CELL COUNT DECREASED [None]
  - COUGH [None]
  - FATIGUE [None]
